FAERS Safety Report 24544158 (Version 1)
Quarter: 2024Q4

REPORT INFORMATION
  Report Type: Spontaneous
  Country: US (occurrence: US)
  Receive Date: 20241024
  Receipt Date: 20241024
  Transmission Date: 20250114
  Serious: Yes (Other)
  Sender: CIVICA
  Company Number: US-CIVICARX-2024-US-055940

PATIENT
  Age: 80 Year

DRUGS (1)
  1. BUPIVACAINE HYDROCHLORIDE [Suspect]
     Active Substance: BUPIVACAINE HYDROCHLORIDE
     Indication: Perioperative analgesia
     Dosage: LESS THAN 10ML INFILTRATED INTO SUBCUTANEOUS TISSUE

REACTIONS (1)
  - Hepatitis [Unknown]
